FAERS Safety Report 7835590-X (Version None)
Quarter: 2011Q4

REPORT INFORMATION
  Report Type: 
  Country: None (occurrence: None)
  Receive Date: 20111024
  Receipt Date: 20111020
  Transmission Date: 20120403
  Serious: Yes (Other)
  Sender: FDA-Public Use
  Company Number: PHHY2011FR89998

PATIENT
  Sex: Male
  Weight: 70 kg

DRUGS (4)
  1. UN-ALFA [Concomitant]
     Route: 048
  2. ZOMETA [Suspect]
     Indication: METASTASES TO BONE
     Dates: start: 20110801
  3. DEGARELIX [Concomitant]
     Indication: PROSTATE CANCER
     Dosage: 80 MG, UNK
     Route: 058
     Dates: start: 20110430
  4. CALCIUM CARBONATE [Concomitant]
     Dosage: 1.54 G, BID
     Route: 048

REACTIONS (8)
  - NAUSEA [None]
  - MYALGIA [None]
  - ASTHENIA [None]
  - VOMITING [None]
  - DECREASED APPETITE [None]
  - BONE PAIN [None]
  - SERUM FERRITIN INCREASED [None]
  - FATIGUE [None]
